FAERS Safety Report 5669724-2 (Version None)
Quarter: 2008Q1

REPORT INFORMATION
  Report Type: 
  Country: None (occurrence: None)
  Receive Date: 20080313
  Receipt Date: 20080313
  Transmission Date: 20080703
  Serious: Yes (Hospitalization)
  Sender: FDA-Public Use
  Company Number: None

PATIENT
  Age: 41 Year
  Sex: Male
  Weight: 104.2 kg

DRUGS (1)
  1. LITHIUM CARBONATE [Suspect]
     Indication: DEPRESSION
     Dosage: 600MG BID PO
     Route: 048
     Dates: start: 20070510, end: 20071217

REACTIONS (2)
  - CONFUSIONAL STATE [None]
  - TREMOR [None]
